APPROVED DRUG PRODUCT: MICONAZOLE NITRATE COMBINATION PACK
Active Ingredient: MICONAZOLE NITRATE
Strength: 2%,200MG
Dosage Form/Route: CREAM, SUPPOSITORY;TOPICAL, VAGINAL
Application: A075329 | Product #001
Applicant: L PERRIGO CO
Approved: Apr 20, 1999 | RLD: No | RS: No | Type: OTC